FAERS Safety Report 23289989 (Version 1)
Quarter: 2023Q4

REPORT INFORMATION
  Report Type: Spontaneous
  Country: TR (occurrence: TR)
  Receive Date: 20231212
  Receipt Date: 20231212
  Transmission Date: 20240110
  Serious: Yes (Other)
  Sender: FDA-Public Use
  Company Number: TR-AMGEN-TURSP2023218400

PATIENT
  Sex: Female

DRUGS (1)
  1. ADALIMUMAB [Suspect]
     Active Substance: ADALIMUMAB\ISOPROPYL ALCOHOL
     Indication: Behcet^s syndrome
     Dosage: UNK
     Route: 065

REACTIONS (19)
  - Abortion spontaneous [Unknown]
  - Caesarean section [Unknown]
  - Vaginal haemorrhage [Unknown]
  - Placenta praevia [Unknown]
  - Cerebral venous sinus thrombosis [Unknown]
  - Abortion threatened [Unknown]
  - Deep vein thrombosis [Unknown]
  - Premature labour [Unknown]
  - Angiopathy [Unknown]
  - Pre-eclampsia [Unknown]
  - Erythema nodosum [Unknown]
  - Adnexal torsion [Unknown]
  - Aphthous ulcer [Unknown]
  - Genital ulceration [Unknown]
  - Off label use [Unknown]
  - Folliculitis [Unknown]
  - Maternal exposure during pregnancy [Unknown]
  - Arthralgia [Unknown]
  - Arthritis [Unknown]
